FAERS Safety Report 6029402-7 (Version None)
Quarter: 2009Q1

REPORT INFORMATION
  Report Type: 
  Country: None (occurrence: None)
  Receive Date: 20090105
  Receipt Date: 20081224
  Transmission Date: 20090719
  Serious: Yes (Death)
  Sender: FDA-Public Use
  Company Number: 1000003039

PATIENT
  Age: 75 Year
  Sex: Male
  Weight: 80 kg

DRUGS (7)
  1. MEMANTINE HCL [Suspect]
  2. LOSARTAN(TABLETS) [Concomitant]
  3. HYDROCHLOROTHIAZIDE [Concomitant]
  4. ACETYLSALICYLIC ACID SRT [Concomitant]
  5. PIRACETAM (TABLETS) [Concomitant]
  6. DONEPEZIL (TABLETS) [Concomitant]
  7. QUETIAPINE (TABLETS) [Concomitant]

REACTIONS (1)
  - CEREBRAL HAEMORRHAGE [None]
